FAERS Safety Report 24580498 (Version 2)
Quarter: 2025Q3

REPORT INFORMATION
  Report Type: Report from Study
  Country: US (occurrence: US)
  Receive Date: 20241105
  Receipt Date: 20250809
  Transmission Date: 20251021
  Serious: Yes (Other)
  Sender: ALEXION PHARMACEUTICALS
  Company Number: US-AstraZeneca-CH-00735290A

PATIENT
  Sex: Female
  Weight: 53.5 kg

DRUGS (1)
  1. CAPIVASERTIB [Suspect]
     Active Substance: CAPIVASERTIB
     Indication: Breast cancer female
     Dosage: 200 MILLIGRAM, BID
     Dates: start: 20240826

REACTIONS (4)
  - Neuropathy peripheral [Unknown]
  - Weight decreased [Unknown]
  - Rash [Recovering/Resolving]
  - Peripheral swelling [Unknown]
